FAERS Safety Report 13034989 (Version 2)
Quarter: 2017Q1

REPORT INFORMATION
  Report Type: Spontaneous
  Country: ES (occurrence: ES)
  Receive Date: 20161216
  Receipt Date: 20170207
  Transmission Date: 20170428
  Serious: Yes (Other)
  Sender: FDA-Public Use
  Company Number: ES-TOLMAR, INC.-2016ES013587

PATIENT
  Age: 74 Year
  Sex: Male

DRUGS (9)
  1. XTANDI [Suspect]
     Active Substance: ENZALUTAMIDE
     Dosage: 120 MG, DAILY
     Route: 048
     Dates: start: 201601
  2. BICALUTAMIDE. [Suspect]
     Active Substance: BICALUTAMIDE
     Indication: PRODUCT USED FOR UNKNOWN INDICATION
     Dosage: UNK
     Route: 065
     Dates: start: 201501, end: 201505
  3. REPAGLINIDE. [Concomitant]
     Active Substance: REPAGLINIDE
  4. NIFEDIPINE. [Concomitant]
     Active Substance: NIFEDIPINE
  5. XTANDI [Suspect]
     Active Substance: ENZALUTAMIDE
     Indication: CHEMOTHERAPY
     Dosage: 160 MG, DAILY
     Route: 048
     Dates: start: 201507, end: 201510
  6. XTANDI [Suspect]
     Active Substance: ENZALUTAMIDE
     Dosage: 80 MG, UNK
     Route: 048
     Dates: start: 201510, end: 201601
  7. METFORMIN [Concomitant]
     Active Substance: METFORMIN HYDROCHLORIDE
  8. CARVEDILOL. [Concomitant]
     Active Substance: CARVEDILOL
  9. ELIGARD [Suspect]
     Active Substance: LEUPROLIDE ACETATE
     Indication: PROSTATE CANCER METASTATIC
     Dosage: 45 MG, BIANNUAL
     Route: 058
     Dates: start: 201310

REACTIONS (3)
  - Prostatic specific antigen increased [Recovering/Resolving]
  - Prostate cancer [Unknown]
  - Fatigue [Not Recovered/Not Resolved]

NARRATIVE: CASE EVENT DATE: 201310
